FAERS Safety Report 9376958 (Version 4)
Quarter: 2013Q3

REPORT INFORMATION
  Report Type: Spontaneous
  Country: US (occurrence: US)
  Receive Date: 20130701
  Receipt Date: 20130918
  Transmission Date: 20140515
  Serious: No
  Sender: FDA-Public Use
  Company Number: US-009507513-1306USA010427

PATIENT
  Sex: Female

DRUGS (2)
  1. NEXPLANON [Suspect]
     Dosage: FREQUENCY:1 ROD EVERY 3 YEARS
     Route: 059
     Dates: start: 20130612, end: 20130612
  2. NEXPLANON [Suspect]
     Dosage: FREQUENCY:1 ROD EVERY 3 YEARS
     Route: 059
     Dates: start: 20130612

REACTIONS (3)
  - Device difficult to use [Unknown]
  - Product quality issue [Unknown]
  - No adverse event [Unknown]
